FAERS Safety Report 12729100 (Version 1)
Quarter: 2016Q3

REPORT INFORMATION
  Report Type: Spontaneous
  Country: US (occurrence: US)
  Receive Date: 20160909
  Receipt Date: 20160909
  Transmission Date: 20161109
  Serious: No
  Sender: FDA-Public Use
  Company Number: US-ASTRAZENECA-2016SE93220

PATIENT
  Age: 25509 Day
  Sex: Male
  Weight: 181.4 kg

DRUGS (3)
  1. MOVANTIK [Suspect]
     Active Substance: NALOXEGOL OXALATE
     Indication: CONSTIPATION
     Dosage: EVERY 3 TO 4 DAYS IN THE MORNING AS NEEDED
     Route: 048
  2. MIRALAX [Concomitant]
     Active Substance: POLYETHYLENE GLYCOL 3350
  3. MOVANTIK [Suspect]
     Active Substance: NALOXEGOL OXALATE
     Indication: CONSTIPATION
     Route: 048
     Dates: start: 20160816

REACTIONS (4)
  - Constipation [Unknown]
  - Abdominal pain [Unknown]
  - Intentional product misuse [Unknown]
  - Drug effect increased [Unknown]

NARRATIVE: CASE EVENT DATE: 20160816
